FAERS Safety Report 9017374 (Version 1)
Quarter: 2013Q1

REPORT INFORMATION
  Report Type: Spontaneous
  Country: US (occurrence: US)
  Receive Date: 20130117
  Receipt Date: 20130117
  Transmission Date: 20140127
  Serious: Yes (Other)
  Sender: FDA-Public Use
  Company Number: US-PFIZER INC-2013019860

PATIENT
  Age: 63 Year
  Sex: Female
  Weight: 86.17 kg

DRUGS (11)
  1. LYRICA [Suspect]
     Indication: PAIN
     Dosage: 200 MG, 1X/DAY
     Route: 048
     Dates: start: 20091204
  2. LYRICA [Suspect]
     Dosage: 200MG IN THE MORNING AND 100MG IN THE EVENING
     Route: 048
  3. LISINOPRIL [Concomitant]
     Indication: HYPERTENSION
     Dosage: UNK
  4. ATENOLOL [Concomitant]
     Indication: HYPERTENSION
     Dosage: UNK
  5. NORVASC [Concomitant]
     Indication: HYPERTENSION
     Dosage: 10 MG, UNK
  6. CALCIUM [Concomitant]
     Dosage: UNK
  7. AVANDIA [Concomitant]
     Dosage: UNK
  8. PERCOCET [Concomitant]
     Dosage: UNK
  9. MORPHINE [Concomitant]
     Dosage: UNK
  10. OXYGEN [Concomitant]
     Indication: DYSPNOEA
     Dosage: UNK
  11. HYDROCHLOROTHIAZIDE [Concomitant]
     Indication: HYPERTENSION
     Dosage: 25 MG, 1X/DAY

REACTIONS (3)
  - Oedema peripheral [Not Recovered/Not Resolved]
  - Fall [Unknown]
  - Muscle strain [Not Recovered/Not Resolved]
